FAERS Safety Report 16987549 (Version 6)
Quarter: 2020Q2

REPORT INFORMATION
  Report Type: Report from Study
  Country: CA (occurrence: CA)
  Receive Date: 20191102
  Receipt Date: 20200421
  Transmission Date: 20200713
  Serious: Yes (Other)
  Sender: FDA-Public Use
  Company Number: PHHY2017CA079021

PATIENT
  Age: 71 Year
  Sex: Male

DRUGS (5)
  1. SANDOSTATIN LAR DEPOT [Suspect]
     Active Substance: OCTREOTIDE ACETATE
     Dosage: 60 MG, QMO
     Route: 030
  2. VITAMIN B12 [Concomitant]
     Active Substance: CYANOCOBALAMIN
     Indication: PRODUCT USED FOR UNKNOWN INDICATION
     Dosage: UNK
     Route: 065
  3. SANDOSTATIN [Suspect]
     Active Substance: OCTREOTIDE ACETATE
     Dosage: UNK
     Route: 065
  4. SANDOSTATIN [Suspect]
     Active Substance: OCTREOTIDE ACETATE
     Indication: CARCINOID TUMOUR
     Dosage: TEST DOSE
     Route: 058
     Dates: start: 20170313, end: 20170313
  5. SANDOSTATIN LAR DEPOT [Suspect]
     Active Substance: OCTREOTIDE ACETATE
     Indication: CARCINOID TUMOUR
     Dosage: 30 MG, Q4W
     Route: 030
     Dates: start: 20170331

REACTIONS (9)
  - Heart rate decreased [Unknown]
  - Dehydration [Unknown]
  - Blood pressure systolic increased [Unknown]
  - Injection site haemorrhage [Unknown]
  - Diarrhoea [Not Recovered/Not Resolved]
  - Syncope [Unknown]
  - Blood pressure fluctuation [Unknown]
  - Fall [Unknown]
  - Blood pressure difference of extremities [Unknown]

NARRATIVE: CASE EVENT DATE: 20170430
